FAERS Safety Report 16654584 (Version 1)
Quarter: 2019Q3

REPORT INFORMATION
  Report Type: Spontaneous
  Country: NL (occurrence: NL)
  Receive Date: 20190801
  Receipt Date: 20190801
  Transmission Date: 20191004
  Serious: Yes (Hospitalization, Other)
  Sender: FDA-Public Use
  Company Number: NL-AUROBINDO-AUR-APL-2019-044309

PATIENT

DRUGS (3)
  1. PREDNISOLON [Suspect]
     Active Substance: PREDNISOLONE
     Indication: GOUT
     Dosage: UNK
     Route: 048
     Dates: start: 20190319, end: 20190506
  2. NAPROXEN 250 MG, TABLET [Suspect]
     Active Substance: NAPROXEN SODIUM
     Indication: GOUT
     Dosage: UNK
     Route: 048
     Dates: start: 20190528, end: 20190604
  3. COLCHICINE 0.5 MG TABLET [Suspect]
     Active Substance: COLCHICINE
     Indication: GOUT
     Dosage: 5 MILLIGRAM, 8 HOUR (3D1T)
     Route: 048
     Dates: start: 20190611

REACTIONS (2)
  - Cardiac failure [Recovering/Resolving]
  - Atrial fibrillation [Recovering/Resolving]
